FAERS Safety Report 26068750 (Version 4)
Quarter: 2025Q4

REPORT INFORMATION
  Report Type: Spontaneous
  Country: EU (occurrence: EU)
  Receive Date: 20251120
  Receipt Date: 20251224
  Transmission Date: 20260118
  Serious: Yes (Other)
  Sender: MERCK SHARP & DOHME LLC
  Company Number: EU-009507513-2350939

PATIENT
  Age: 70 Year
  Sex: Female
  Weight: 74 kg

DRUGS (3)
  1. PEMBROLIZUMAB [Suspect]
     Active Substance: PEMBROLIZUMAB
     Indication: Endometrial cancer
     Dosage: 200 MG Q3W
     Route: 042
     Dates: start: 20250327, end: 20250731
  2. LENVATINIB [Suspect]
     Active Substance: LENVATINIB
     Indication: Endometrial cancer
     Dosage: 20 MG, QD, DOSE REDUCED
     Route: 048
     Dates: start: 20250327, end: 202507
  3. Nalgezin [Concomitant]

REACTIONS (5)
  - Pyelonephritis [Recovered/Resolved]
  - Malignant neoplasm progression [Unknown]
  - Hypertension [Unknown]
  - Asthenia [Recovered/Resolved]
  - Hypothyroidism [Unknown]

NARRATIVE: CASE EVENT DATE: 20250101
